FAERS Safety Report 26211229 (Version 1)
Quarter: 2025Q4

REPORT INFORMATION
  Report Type: Spontaneous
  Country: US (occurrence: US)
  Receive Date: 20251230
  Receipt Date: 20251230
  Transmission Date: 20260118
  Serious: No
  Sender: ALEXION PHARMACEUTICALS
  Company Number: US-AstraZeneca-CH-01020584AP

PATIENT
  Sex: Female

DRUGS (1)
  1. BREZTRI [Suspect]
     Active Substance: BUDESONIDE\FORMOTEROL\GLYCOPYRROLATE
     Route: 065

REACTIONS (11)
  - Urine output increased [Unknown]
  - Blood pressure increased [Unknown]
  - Muscle spasms [Unknown]
  - Candida infection [Unknown]
  - Wrong technique in device usage process [Unknown]
  - Cardiac disorder [Unknown]
  - Blood potassium abnormal [Unknown]
  - Dysphonia [Unknown]
  - Urinary tract infection [Unknown]
  - Device delivery system issue [Unknown]
  - Intentional device use issue [Unknown]
